FAERS Safety Report 16409155 (Version 1)
Quarter: 2019Q3

REPORT INFORMATION
  Report Type: Spontaneous
  Country: US (occurrence: US)
  Receive Date: 20190607
  Receipt Date: 20190607
  Transmission Date: 20191004
  Serious: Yes (Disabling)
  Sender: FDA-Public Use
  Company Number: None

PATIENT
  Age: 25 Year
  Sex: Female
  Weight: 61.23 kg

DRUGS (10)
  1. PROBIOTIC [Concomitant]
     Active Substance: PROBIOTICS NOS
  2. COD LIVER OIL [Concomitant]
     Active Substance: COD LIVER OIL
  3. MIRENA [Suspect]
     Active Substance: LEVONORGESTREL
  4. MULTIVITAMIN [Concomitant]
     Active Substance: VITAMINS
  5. HERBS [Concomitant]
     Active Substance: HERBALS
  6. CANDIBACTRIN-AR [Concomitant]
  7. IMMUNOSUPPRESANTS [Concomitant]
  8. CANDIBACTIN-BR [Concomitant]
  9. CURCUMIN GOLD [Concomitant]
  10. VITAMIN D [Concomitant]
     Active Substance: VITAMIN D NOS

REACTIONS (5)
  - Inflammatory bowel disease [None]
  - Menorrhagia [None]
  - Condition aggravated [None]
  - Bacterial vaginosis [None]
  - Crohn^s disease [None]

NARRATIVE: CASE EVENT DATE: 20161229
